FAERS Safety Report 4786230-8 (Version None)
Quarter: 2005Q3

REPORT INFORMATION
  Report Type: 
  Country: None (occurrence: None)
  Receive Date: 20050930
  Receipt Date: 20050920
  Transmission Date: 20060218
  Serious: Yes (Disabling)
  Sender: FDA-Public Use
  Company Number: 200408192

PATIENT
  Age: 56 Year
  Sex: Female

DRUGS (27)
  1. BOTOX [Suspect]
     Indication: FACIAL SPASM
     Dates: start: 19950101, end: 20010101
  2. BOTOX [Suspect]
     Indication: FACIAL SPASM
     Dosage: 35 UNITS ONCE IM
     Route: 030
     Dates: start: 20020228, end: 20020228
  3. BOTOX [Suspect]
     Indication: FACIAL SPASM
     Dosage: 37.5 UNITS ONCE IM
     Route: 030
     Dates: start: 20020813, end: 20020813
  4. CELEBREX [Concomitant]
  5. PREVACID [Concomitant]
  6. ACEIPHEX [Concomitant]
  7. VALTREX [Concomitant]
  8. PREDNISONE [Concomitant]
  9. PRILOSEC [Concomitant]
  10. ACYCLOVIR [Concomitant]
  11. ALPRAZOLAM [Concomitant]
  12. HYOSCYAMINE [Concomitant]
  13. NORTRIPTYLINE HCL [Concomitant]
  14. MONODOX [Concomitant]
  15. ESTRATEST H.S. [Concomitant]
  16. CEPHALEXIN [Concomitant]
  17. ZYTRTEC [Concomitant]
  18. CLOBETASOL [Concomitant]
  19. NEURONTIN [Concomitant]
  20. MAXALT [Concomitant]
  21. PREMARIN [Concomitant]
  22. ZANTAC [Concomitant]
  23. ASPIRIN [Concomitant]
  24. CARAFATE [Concomitant]
  25. ATACAND [Concomitant]
  26. AXERT [Concomitant]
  27. FIORICET W/ CODEINE [Concomitant]

REACTIONS (49)
  - ANXIETY [None]
  - ARTIFICIAL CROWN PROCEDURE [None]
  - ASTHENIA [None]
  - BACK INJURY [None]
  - BACK PAIN [None]
  - BALANCE DISORDER [None]
  - BURNING SENSATION [None]
  - CHOKING [None]
  - DIFFICULTY IN WALKING [None]
  - DROOLING [None]
  - DYSARTHRIA [None]
  - DYSGEUSIA [None]
  - EPICONDYLITIS [None]
  - EXOSTOSIS [None]
  - EYE DISORDER [None]
  - EYE INFLAMMATION [None]
  - EYELID DISORDER [None]
  - FACIAL PALSY [None]
  - FACIAL SPASM [None]
  - FALL [None]
  - FATIGUE [None]
  - HEADACHE [None]
  - HYPOAESTHESIA [None]
  - IMPAIRED WORK ABILITY [None]
  - INSOMNIA [None]
  - INTERVERTEBRAL DISC PROTRUSION [None]
  - MUSCLE CONTRACTIONS INVOLUNTARY [None]
  - MUSCLE SPASMS [None]
  - MUSCLE TWITCHING [None]
  - MUSCULAR WEAKNESS [None]
  - MUSCULOSKELETAL STIFFNESS [None]
  - NECK PAIN [None]
  - NEUROLOGICAL SYMPTOM [None]
  - NEUROPATHIC PAIN [None]
  - NEUROPATHY PERIPHERAL [None]
  - OSTEOARTHRITIS [None]
  - PAIN [None]
  - PAIN IN EXTREMITY [None]
  - PARALYSIS [None]
  - PHOTOSENSITIVITY REACTION [None]
  - RETCHING [None]
  - ROAD TRAFFIC ACCIDENT [None]
  - SENSORY DISTURBANCE [None]
  - SHOULDER PAIN [None]
  - SKIN BURNING SENSATION [None]
  - SKIN ODOUR ABNORMAL [None]
  - STRESS [None]
  - UNEMPLOYMENT [None]
  - UNEVALUABLE EVENT [None]
